FAERS Safety Report 9405674 (Version 1)
Quarter: 2013Q3

REPORT INFORMATION
  Report Type: Spontaneous
  Country: US (occurrence: US)
  Receive Date: 20130717
  Receipt Date: 20130717
  Transmission Date: 20140515
  Serious: Yes (Other)
  Sender: FDA-Public Use
  Company Number: US-PFIZER INC-2013208159

PATIENT
  Age: 56 Year
  Sex: Female
  Weight: 75.74 kg

DRUGS (2)
  1. LYRICA [Suspect]
     Indication: GENICULATE GANGLIONITIS
     Dosage: 150 MG, 3X/DAY
     Route: 048
     Dates: start: 201209
  2. TEGRETOL [Concomitant]
     Dosage: UNK, 1X/DAY

REACTIONS (2)
  - Off label use [Unknown]
  - Weight increased [Unknown]
